FAERS Safety Report 7071295-3 (Version None)
Quarter: 2010Q4

REPORT INFORMATION
  Report Type: 
  Country: None (occurrence: None)
  Receive Date: 20101028
  Receipt Date: 20101028
  Transmission Date: 20110411
  Serious: Yes (Other)
  Sender: FDA-Public Use
  Company Number: None

PATIENT
  Sex: Male
  Weight: 90.9 kg

DRUGS (1)
  1. CRESTOR [Suspect]
     Indication: HYPERLIPIDAEMIA
     Dosage: 10 MG 1 DAILY BY MOUTH
     Route: 048
     Dates: start: 20090601, end: 20100201

REACTIONS (2)
  - ARTHRALGIA [None]
  - MYALGIA [None]
